FAERS Safety Report 24774152 (Version 12)
Quarter: 2025Q4

REPORT INFORMATION
  Report Type: Spontaneous
  Country: US (occurrence: US)
  Receive Date: 20241225
  Receipt Date: 20251202
  Transmission Date: 20260118
  Serious: No
  Sender: SANOFI AVENTIS
  Company Number: US-SA-2024SA378314

PATIENT
  Age: 60 Year
  Sex: Male

DRUGS (7)
  1. DUPIXENT [Suspect]
     Active Substance: DUPILUMAB
     Indication: Nasal polyps
     Dosage: 300 MG, QOW
     Route: 058
     Dates: start: 20241115, end: 202411
  2. DUPIXENT [Suspect]
     Active Substance: DUPILUMAB
     Indication: Asthma
     Dosage: 200 MG, QOW
     Route: 058
     Dates: start: 202411
  3. DUPIXENT [Suspect]
     Active Substance: DUPILUMAB
     Indication: Chronic rhinosinusitis with nasal polyps
     Dosage: 300 MG, Q3W
     Route: 058
  4. DUPIXENT [Suspect]
     Active Substance: DUPILUMAB
     Dosage: 200 MG, Q3W
     Route: 058
     Dates: start: 202503, end: 2025
  5. DUPIXENT [Suspect]
     Active Substance: DUPILUMAB
     Dosage: 200 MG, QOW
     Route: 058
     Dates: start: 2025
  6. DUPIXENT [Suspect]
     Active Substance: DUPILUMAB
     Dosage: 300 MG, QOW
     Route: 058
     Dates: start: 2025
  7. DUPIXENT [Suspect]
     Active Substance: DUPILUMAB
     Dosage: 200 MG, QOW
     Route: 058
     Dates: start: 2025

REACTIONS (19)
  - Paraesthesia [Unknown]
  - Nasal congestion [Unknown]
  - Muscular weakness [Not Recovered/Not Resolved]
  - Nasal congestion [Recovered/Resolved]
  - Anosmia [Recovered/Resolved]
  - Rhinorrhoea [Unknown]
  - Condition aggravated [Unknown]
  - Anosmia [Not Recovered/Not Resolved]
  - Condition aggravated [Not Recovered/Not Resolved]
  - Abdominal pain upper [Unknown]
  - Abdominal pain [Unknown]
  - Myalgia [Recovering/Resolving]
  - Vision blurred [Not Recovered/Not Resolved]
  - Rash [Recovered/Resolved]
  - Hypersensitivity [Unknown]
  - Arthralgia [Recovered/Resolved]
  - Off label use [Unknown]
  - Therapeutic response shortened [Unknown]
  - Incorrect dose administered [Unknown]

NARRATIVE: CASE EVENT DATE: 20240101
